FAERS Safety Report 10961143 (Version 1)
Quarter: 2015Q1

REPORT INFORMATION
  Report Type: Spontaneous
  Country: US (occurrence: US)
  Receive Date: 20150327
  Receipt Date: 20150327
  Transmission Date: 20150721
  Serious: Yes (Death)
  Sender: FDA-Public Use
  Company Number: US-CIPLA LTD.-2015US02331

PATIENT

DRUGS (4)
  1. ACETAMINOPHEN/HYDROCODONE [Suspect]
     Active Substance: ACETAMINOPHEN\HYDROCODONE
  2. ALPRAZOLAM. [Suspect]
     Active Substance: ALPRAZOLAM
  3. CARVEDILOL. [Suspect]
     Active Substance: CARVEDILOL
  4. NIFEDIPINE. [Suspect]
     Active Substance: NIFEDIPINE

REACTIONS (1)
  - Completed suicide [Fatal]
